FAERS Safety Report 8850174 (Version 1)
Quarter: 2012Q4

REPORT INFORMATION
  Report Type: 
  Country: BE (occurrence: BE)
  Receive Date: 20121019
  Receipt Date: 20121019
  Transmission Date: 20130627
  Serious: Yes (Other)
  Sender: FDA-Public Use
  Company Number: BE-GLAXOSMITHKLINE-B0832353A

PATIENT
  Age: 3 Year
  Sex: Female
  Weight: 10.5 kg

DRUGS (1)
  1. DERMOVATE [Suspect]
     Indication: ARTHROPOD BITE
     Route: 065
     Dates: start: 20120913, end: 20120913

REACTIONS (1)
  - Skin depigmentation [Recovered/Resolved]
